FAERS Safety Report 8239275-X (Version None)
Quarter: 2012Q1

REPORT INFORMATION
  Report Type: 
  Country: None (occurrence: None)
  Receive Date: 20120328
  Receipt Date: 20120320
  Transmission Date: 20120608
  Serious: No
  Sender: FDA-Public Use
  Company Number: US-BIOGENIDEC-2012BI009759

PATIENT
  Sex: Female

DRUGS (1)
  1. AVONEX [Suspect]
     Indication: MULTIPLE SCLEROSIS
     Route: 030
     Dates: start: 19960610, end: 19980610

REACTIONS (8)
  - NASOPHARYNGITIS [None]
  - PAIN [None]
  - GAIT DISTURBANCE [None]
  - NERVOUSNESS [None]
  - DIZZINESS [None]
  - MULTIPLE SCLEROSIS [None]
  - ARTHRITIS [None]
  - HEADACHE [None]
